FAERS Safety Report 8436876-0 (Version None)
Quarter: 2012Q2

REPORT INFORMATION
  Report Type: 
  Country: None (occurrence: None)
  Receive Date: 20120614
  Receipt Date: 20120608
  Transmission Date: 20120825
  Serious: Yes (Other)
  Sender: FDA-Public Use
  Company Number: CA-ABBOTT-12P-028-0941334-00

PATIENT
  Sex: Male

DRUGS (1)
  1. HUMIRA [Suspect]
     Indication: ANKYLOSING SPONDYLITIS
     Route: 058
     Dates: start: 20110818, end: 20120517

REACTIONS (4)
  - CONVULSION [None]
  - FOAMING AT MOUTH [None]
  - INJECTION SITE HAEMATOMA [None]
  - VISION BLURRED [None]
